FAERS Safety Report 9279273 (Version 1)
Quarter: 2013Q2

REPORT INFORMATION
  Report Type: Spontaneous
  Country: None (occurrence: None)
  Receive Date: 20130501
  Receipt Date: 20130501
  Transmission Date: 20140414
  Serious: Yes (Death, Other)
  Sender: FDA-Public Use
  Company Number: 2135225-2013-00054

PATIENT
  Age: 80 Year
  Sex: Male

DRUGS (1)
  1. AETHOXYSKLEROL [Suspect]

REACTIONS (19)
  - Asthenia [None]
  - Pallor [None]
  - Melaena [None]
  - Blood pressure systolic increased [None]
  - Abdominal pain upper [None]
  - Haemoglobin decreased [None]
  - International normalised ratio increased [None]
  - Pancreatitis [None]
  - Haematoma [None]
  - Cardiac arrest [None]
  - Gastrointestinal disorder [None]
  - Abdominal pain [None]
  - Oedematous pancreatitis [None]
  - Musculoskeletal disorder [None]
  - Connective tissue disorder [None]
  - Connective tissue inflammation [None]
  - Small intestinal haemorrhage [None]
  - Cardiac disorder [None]
  - Duodenal perforation [None]
